FAERS Safety Report 4595690-7 (Version None)
Quarter: 2005Q1

REPORT INFORMATION
  Report Type: 
  Country: None (occurrence: None)
  Receive Date: 20050224
  Receipt Date: 20050208
  Transmission Date: 20050727
  Serious: No
  Sender: FDA-Public Use
  Company Number: 10237

PATIENT
  Age: 57 Year
  Sex: Male

DRUGS (14)
  1. AMIODARONE [Suspect]
     Dosage: SEE IMAGE
  2. BISOPROLOL FUMARATE [Concomitant]
  3. ENALAPRIL MALEATE [Concomitant]
  4. DIGOXIN [Concomitant]
  5. FUROSEMIDE [Concomitant]
  6. TORSEMIDE [Concomitant]
  7. VENLAFAXINE HCL [Concomitant]
  8. ACETAMINOPHEN [Concomitant]
  9. CAPTOPRIL [Concomitant]
  10. HEPARIN [Concomitant]
  11. ACETYLSALICYLIC ACID [Concomitant]
  12. TOSEMIDE [Suspect]
  13. METOPROLOL [Concomitant]
  14. NITROGLYCERIN [Concomitant]

REACTIONS (3)
  - HEPATOCELLULAR DAMAGE [None]
  - HEPATOTOXICITY [None]
  - POST PROCEDURAL COMPLICATION [None]
